FAERS Safety Report 10223807 (Version 2)
Quarter: 2014Q2

REPORT INFORMATION
  Report Type: Spontaneous
  Country: GB (occurrence: GB)
  Receive Date: 20140609
  Receipt Date: 20140609
  Transmission Date: 20141212
  Serious: Yes (Other)
  Sender: FDA-Public Use
  Company Number: GB-JNJFOC-20140506462

PATIENT
  Sex: Male

DRUGS (2)
  1. DUROGESIC DTRANS [Suspect]
     Indication: ANALGESIC THERAPY
     Route: 062
  2. DUROGESIC DTRANS [Suspect]
     Indication: ANALGESIC THERAPY
     Route: 062

REACTIONS (3)
  - Intentional product misuse [Unknown]
  - Drug abuse [Unknown]
  - Drug administration error [Unknown]
